FAERS Safety Report 5689562-4 (Version None)
Quarter: 2008Q1

REPORT INFORMATION
  Report Type: 
  Country: None (occurrence: None)
  Receive Date: 20080331
  Receipt Date: 20080319
  Transmission Date: 20080703
  Serious: Yes (Other)
  Sender: FDA-Public Use
  Company Number: JP-PFIZER INC-2008027364

PATIENT
  Sex: Male

DRUGS (8)
  1. IRINOTECAN HCL [Suspect]
     Indication: GASTRIC CANCER
     Dosage: DAILY DOSE:125.6MG
     Route: 042
     Dates: start: 20050131, end: 20050214
  2. IRINOTECAN HCL [Suspect]
     Dosage: DAILY DOSE:94.2MG
     Route: 042
     Dates: start: 20050310, end: 20050603
  3. TEGAFUR/GIMERACIL/OTERACIL POTASSIUM [Suspect]
     Indication: GASTRIC CANCER
     Dosage: DAILY DOSE:60MG-FREQ:BID
     Route: 042
     Dates: start: 20050131, end: 20050220
  4. TEGAFUR/GIMERACIL/OTERACIL POTASSIUM [Suspect]
     Dosage: DAILY DOSE:50MG-FREQ:BID
     Route: 042
     Dates: start: 20050310, end: 20050324
  5. TEGAFUR/GIMERACIL/OTERACIL POTASSIUM [Suspect]
     Dosage: DAILY DOSE:40MG-FREQ:BID
     Route: 042
     Dates: start: 20050415, end: 20050617
  6. NOVOLIN R [Concomitant]
     Indication: DIABETES MELLITUS
     Route: 058
  7. LASIX [Concomitant]
     Indication: RENAL FAILURE CHRONIC
     Route: 048
  8. ACECOL [Concomitant]
     Indication: HYPERTENSION
     Route: 048

REACTIONS (1)
  - HYPERKALAEMIA [None]
